FAERS Safety Report 20575717 (Version 1)
Quarter: 2022Q1

REPORT INFORMATION
  Report Type: Spontaneous
  Country: US (occurrence: None)
  Receive Date: 20220310
  Receipt Date: 20220310
  Transmission Date: 20220424
  Serious: No
  Sender: FDA-Public Use
  Company Number: 2022A071180

PATIENT
  Sex: Female

DRUGS (2)
  1. LYNPARZA [Interacting]
     Active Substance: OLAPARIB
     Route: 048
     Dates: start: 2020
  2. VIBRAMYCIN [Interacting]
     Active Substance: DOXYCYCLINE
     Indication: Rosacea
     Dosage: 40MG AS OPPOSE TO THE 100MG
     Route: 065

REACTIONS (5)
  - Drug interaction [Unknown]
  - Bone marrow disorder [Unknown]
  - Haematocrit abnormal [Unknown]
  - Haemoglobin abnormal [Unknown]
  - Rosacea [Unknown]
